FAERS Safety Report 9945417 (Version 1)
Quarter: 2014Q1

REPORT INFORMATION
  Report Type: Report from Study
  Country: US (occurrence: US)
  Receive Date: 20140303
  Receipt Date: 20140303
  Transmission Date: 20141002
  Serious: No
  Sender: FDA-Public Use
  Company Number: US-ABBVIE-13P-163-1048382-00

PATIENT
  Age: 39 Year
  Sex: Male

DRUGS (5)
  1. HUMIRA [Suspect]
     Indication: COLITIS ULCERATIVE
     Route: 058
     Dates: start: 20130111, end: 20130111
  2. HUMIRA [Suspect]
     Route: 058
     Dates: start: 20130112, end: 20130112
  3. HUMIRA [Suspect]
     Dosage: PATIENT TOOK 80MGS
     Route: 058
     Dates: start: 20130125
  4. ASACOL [Concomitant]
     Indication: COLITIS ULCERATIVE
  5. 6MP [Concomitant]
     Indication: COLITIS ULCERATIVE

REACTIONS (2)
  - Incorrect dose administered [Recovered/Resolved]
  - Drug administration error [Recovered/Resolved]
